FAERS Safety Report 13776906 (Version 1)
Quarter: 2017Q3

REPORT INFORMATION
  Report Type: Spontaneous
  Country: US (occurrence: US)
  Receive Date: 20170721
  Receipt Date: 20170721
  Transmission Date: 20171127
  Serious: Yes (Disabling)
  Sender: FDA-Public Use
  Company Number: None

PATIENT
  Age: 59 Year
  Sex: Female
  Weight: 74.25 kg

DRUGS (1)
  1. LEVAQUIN [Suspect]
     Active Substance: LEVOFLOXACIN
     Indication: SINUSITIS
     Route: 055
     Dates: start: 20130906, end: 20140301

REACTIONS (9)
  - Psoriatic arthropathy [None]
  - Carpal tunnel syndrome [None]
  - Trigger finger [None]
  - Sleep disorder [None]
  - Neck pain [None]
  - Loss of personal independence in daily activities [None]
  - Night sweats [None]
  - Tendonitis [None]
  - Headache [None]

NARRATIVE: CASE EVENT DATE: 20140301
